FAERS Safety Report 7619692-9 (Version None)
Quarter: 2011Q3

REPORT INFORMATION
  Report Type: 
  Country: None (occurrence: None)
  Receive Date: 20110719
  Receipt Date: 20110712
  Transmission Date: 20111222
  Serious: Yes (Hospitalization)
  Sender: FDA-Public Use
  Company Number: JP-B.I. PHARMACEUTICALS,INC./RIDGEFIELD-2011-BP-13791NB

PATIENT
  Sex: Male

DRUGS (9)
  1. LASIX [Concomitant]
     Indication: ATRIAL FIBRILLATION
  2. PRADAXA [Suspect]
     Indication: ATRIAL FIBRILLATION
     Dosage: 300 MG
     Route: 048
     Dates: start: 20110422, end: 20110515
  3. LASIX [Concomitant]
     Indication: HYPERTENSION
  4. ADALAT [Concomitant]
     Indication: ATRIAL FIBRILLATION
  5. ADALAT [Concomitant]
     Indication: HYPERTENSION
  6. LASIX [Concomitant]
     Indication: CEREBRAL INFARCTION
     Route: 048
     Dates: start: 20110506
  7. ADALAT [Concomitant]
     Indication: CEREBRAL INFARCTION
     Route: 048
     Dates: start: 20110506
  8. LIPITOR [Concomitant]
     Indication: CEREBRAL INFARCTION
     Route: 048
     Dates: start: 20110506
  9. ARICEPT [Concomitant]
     Indication: CEREBRAL INFARCTION
     Route: 048
     Dates: start: 20110506

REACTIONS (4)
  - NAUSEA [None]
  - TREMOR [None]
  - MALAISE [None]
  - VOMITING [None]
